FAERS Safety Report 5964250-5 (Version None)
Quarter: 2008Q4

REPORT INFORMATION
  Report Type: 
  Country: None (occurrence: None)
  Receive Date: 20081119
  Receipt Date: 20081013
  Transmission Date: 20090506
  Serious: No
  Sender: FDA-Public Use
  Company Number: WAES 0810USA02155

PATIENT
  Age: 63 Year
  Sex: Female

DRUGS (2)
  1. JANUVIA [Suspect]
     Indication: TYPE 2 DIABETES MELLITUS
     Dosage: 100 MG/DAILY/PO
     Route: 048
     Dates: start: 20080801, end: 20081012
  2. [THERAPY UNSPECIFIED] [Concomitant]

REACTIONS (3)
  - CONSTIPATION [None]
  - PAIN IN EXTREMITY [None]
  - RASH [None]
